FAERS Safety Report 9976237 (Version 1)
Quarter: 2014Q1

REPORT INFORMATION
  Report Type: Report from Study
  Country: US (occurrence: US)
  Receive Date: 20140306
  Receipt Date: 20140306
  Transmission Date: 20141002
  Serious: No
  Sender: FDA-Public Use
  Company Number: US-ABBVIE-13P-163-1165570-00

PATIENT
  Age: 39 Year
  Sex: Male

DRUGS (6)
  1. HUMIRA [Suspect]
     Indication: PSORIASIS
     Dates: start: 20131002, end: 20131002
  2. HUMIRA [Suspect]
     Dates: start: 20131009, end: 20131009
  3. HUMIRA [Suspect]
     Dates: start: 20131016, end: 20131016
  4. HUMIRA [Suspect]
     Dates: start: 20131031
  5. CLOBETASOL [Concomitant]
     Indication: PSORIASIS
     Route: 061
  6. TURMERIC [Concomitant]
     Indication: PRODUCT USED FOR UNKNOWN INDICATION

REACTIONS (5)
  - Underdose [Unknown]
  - Incorrect drug administration duration [Unknown]
  - Dry skin [Not Recovered/Not Resolved]
  - Overdose [Unknown]
  - Incorrect drug administration duration [Unknown]
